FAERS Safety Report 6412399-5 (Version None)
Quarter: 2009Q4

REPORT INFORMATION
  Report Type: 
  Country: None (occurrence: None)
  Receive Date: 20091023
  Receipt Date: 20091015
  Transmission Date: 20100525
  Serious: Yes (Death, Life-Threatening)
  Sender: FDA-Public Use
  Company Number: JP-NOVOPROD-292857

PATIENT
  Age: 58 Year
  Sex: Female

DRUGS (1)
  1. NOVOSEVEN [Suspect]
     Indication: HAEMOSTASIS
     Dosage: 4.8 MG, QD
     Route: 042
     Dates: start: 20091013, end: 20091013

REACTIONS (1)
  - SHOCK HAEMORRHAGIC [None]
